FAERS Safety Report 12481996 (Version 1)
Quarter: 2016Q2

REPORT INFORMATION
  Report Type: Spontaneous
  Country: US (occurrence: US)
  Receive Date: 20160620
  Receipt Date: 20160620
  Transmission Date: 20160815
  Serious: Yes (Other)
  Sender: FDA-Public Use
  Company Number: US-WATSON-2016-12670

PATIENT
  Age: 74 Year
  Sex: Female

DRUGS (1)
  1. DILTIAZEM (ACTAVIS LABORATORIES UT, INC.) [Suspect]
     Active Substance: DILTIAZEM
     Indication: PRODUCT USED FOR UNKNOWN INDICATION
     Dosage: 240 MG, ONCE DAILY
     Route: 048
     Dates: start: 2006, end: 20160609

REACTIONS (7)
  - Eye haemorrhage [Unknown]
  - Peripheral swelling [Recovering/Resolving]
  - Eye irritation [Recovering/Resolving]
  - Rash [Recovering/Resolving]
  - Muscle spasms [Recovering/Resolving]
  - Fluid retention [Recovering/Resolving]
  - Nasal congestion [Recovering/Resolving]
